FAERS Safety Report 6934779-1 (Version None)
Quarter: 2010Q3

REPORT INFORMATION
  Report Type: 
  Country: None (occurrence: None)
  Receive Date: 20100820
  Receipt Date: 20100805
  Transmission Date: 20110219
  Serious: Yes (Hospitalization)
  Sender: FDA-Public Use
  Company Number: PHHY2010JP45525

PATIENT
  Age: 77 Year
  Sex: Male

DRUGS (3)
  1. DIOVAN [Suspect]
     Dosage: 40 MG, QD
     Route: 048
     Dates: end: 20100717
  2. FAMOTIDINE [Concomitant]
     Dosage: 40 MG
     Route: 048
     Dates: end: 20100717
  3. LAC B [Concomitant]
     Dosage: 9 MG
     Route: 048
     Dates: end: 20100717

REACTIONS (2)
  - CEREBROVASCULAR ACCIDENT [None]
  - SALIVA ALTERED [None]
